FAERS Safety Report 6764843-1 (Version None)
Quarter: 2010Q2

REPORT INFORMATION
  Report Type: 
  Country: None (occurrence: None)
  Receive Date: 20100609
  Receipt Date: 20100512
  Transmission Date: 20101027
  Serious: No
  Sender: FDA-Public Use
  Company Number: 2010011659

PATIENT
  Age: 3 Year
  Sex: Male
  Weight: 20.4119 kg

DRUGS (1)
  1. CHILDREN'S ZYRTEC ALLERGY [Suspect]
     Indication: SEASONAL ALLERGY
     Dosage: 0.75 ONCE DAILY, ORAL
     Route: 048
     Dates: start: 20100201, end: 20100509

REACTIONS (3)
  - ANGER [None]
  - PRODUCT QUALITY ISSUE [None]
  - URTICARIA [None]
